FAERS Safety Report 5505895-6 (Version None)
Quarter: 2007Q4

REPORT INFORMATION
  Report Type: 
  Country: None (occurrence: None)
  Receive Date: 20071102
  Receipt Date: 20071023
  Transmission Date: 20080405
  Serious: Yes (Other)
  Sender: FDA-Public Use
  Company Number: FR-PFIZER INC-2007090126

PATIENT
  Age: 53 Year
  Sex: Male

DRUGS (1)
  1. CHAMPIX [Suspect]
     Dates: start: 20070903, end: 20070901

REACTIONS (2)
  - ARTHRALGIA [None]
  - PERICARDITIS INFECTIVE [None]
